FAERS Safety Report 7039378-1 (Version None)
Quarter: 2010Q4

REPORT INFORMATION
  Report Type: 
  Country: None (occurrence: None)
  Receive Date: 20101012
  Receipt Date: 20101007
  Transmission Date: 20110411
  Serious: Yes (Hospitalization)
  Sender: FDA-Public Use
  Company Number: CH-BRISTOL-MYERS SQUIBB COMPANY-15325343

PATIENT
  Age: 43 Year
  Sex: Female

DRUGS (12)
  1. ETOPOSIDE [Suspect]
     Indication: HODGKIN'S DISEASE
     Dosage: 21 DAY REGIMEN
     Route: 051
     Dates: start: 20081101, end: 20090301
  2. BLEOMYCIN SULFATE [Suspect]
     Indication: HODGKIN'S DISEASE
     Dosage: 21 DAY REGIMEN
     Route: 051
     Dates: start: 20081101, end: 20090301
  3. CYCLOPHOSPHAMIDE [Suspect]
     Indication: HODGKIN'S DISEASE
     Dosage: 21 DAY REGIMEN
     Route: 051
     Dates: start: 20081101, end: 20090301
  4. DOXORUBICIN [Suspect]
     Indication: HODGKIN'S DISEASE
     Dosage: 21 DAY REGIMEN
     Route: 051
     Dates: start: 20081101, end: 20090301
  5. VINCRISTINE SULFATE [Suspect]
     Indication: HODGKIN'S DISEASE
     Dosage: 21 DAY REGIMEN
     Route: 051
     Dates: start: 20081101, end: 20090301
  6. PREDNISONE [Suspect]
     Indication: HODGKIN'S DISEASE
     Dosage: 21 DAY REGIMEN
     Route: 048
     Dates: start: 20081101, end: 20090301
  7. PIPERACILLIN AND TAZOBACTAM [Concomitant]
  8. PANTOPRAZOLE SODIUM [Concomitant]
  9. WELLVONE [Concomitant]
  10. DIFLUCAN [Concomitant]
  11. TRANSIPEG [Concomitant]
  12. LIDOCAINE + TRIBENOSIDE [Concomitant]

REACTIONS (9)
  - AMENORRHOEA [None]
  - ARTHRALGIA [None]
  - BONE DENSITY DECREASED [None]
  - BONE MARROW FAILURE [None]
  - LIVER ABSCESS [None]
  - MYALGIA [None]
  - NAUSEA [None]
  - SEPSIS [None]
  - VOMITING [None]
